FAERS Safety Report 11865982 (Version 1)
Quarter: 2015Q4

REPORT INFORMATION
  Report Type: Spontaneous
  Country: US (occurrence: US)
  Receive Date: 20151223
  Receipt Date: 20151223
  Transmission Date: 20160305
  Serious: Yes (Other)
  Sender: FDA-Public Use
  Company Number: US-PFIZER INC-2015456697

PATIENT
  Sex: Male

DRUGS (3)
  1. AMBIEN [Suspect]
     Active Substance: ZOLPIDEM TARTRATE
     Dosage: UNK
  2. NEURONTIN [Suspect]
     Active Substance: GABAPENTIN
     Dosage: UNK
  3. VALIUM [Suspect]
     Active Substance: DIAZEPAM
     Dosage: UNK

REACTIONS (8)
  - Depression [Unknown]
  - Tremor [Unknown]
  - Suicidal ideation [Unknown]
  - Alopecia [Unknown]
  - Anger [Unknown]
  - Palpitations [Unknown]
  - Paraesthesia [Unknown]
  - Impaired driving ability [Unknown]
